FAERS Safety Report 5874516-5 (Version None)
Quarter: 2008Q3

REPORT INFORMATION
  Report Type: 
  Country: None (occurrence: None)
  Receive Date: 20080909
  Receipt Date: 20080829
  Transmission Date: 20090109
  Serious: Yes (Other)
  Sender: FDA-Public Use
  Company Number: PHHY2008BR19620

PATIENT
  Sex: Female

DRUGS (2)
  1. VOLTAREN [Suspect]
     Indication: HEADACHE
     Dosage: 75 MG/3 ML ; 5 AMP (1 APPLICATION)
     Dates: start: 20080828, end: 20080828
  2. VOLTAREN [Suspect]
     Indication: DYSPNOEA

REACTIONS (5)
  - ABASIA [None]
  - BLOOD PRESSURE DECREASED [None]
  - PAIN IN EXTREMITY [None]
  - POOR QUALITY SLEEP [None]
  - SYNCOPE [None]
